FAERS Safety Report 10039388 (Version 2)
Quarter: 2014Q2

REPORT INFORMATION
  Report Type: Report from Study
  Country: US (occurrence: US)
  Receive Date: 20140326
  Receipt Date: 20140516
  Transmission Date: 20141212
  Serious: Yes (Other)
  Sender: FDA-Public Use
  Company Number: PHEH2014US005757

PATIENT
  Age: 29 Year
  Sex: Male

DRUGS (10)
  1. TOBI PODHALER [Suspect]
     Indication: CYSTIC FIBROSIS
     Dosage: 112 MG, TWICE DAILY
     Route: 055
     Dates: start: 20140210, end: 20140224
  2. ALBUTEROL [Concomitant]
     Dosage: UNK
  3. SALINE [Concomitant]
     Dosage: UNK UKN, UNK
  4. TOBI [Concomitant]
     Dosage: UNK UKN, UNK
  5. ALLOPURINOL [Concomitant]
     Dosage: UNK UKN, UNK
  6. AZITHROMYCIN [Concomitant]
     Dosage: UNK UKN, UNK
  7. LEVOTHYROXINE [Concomitant]
     Dosage: UNK UKN, UNK
  8. MULTIVITAMIN                       /00097801/ [Concomitant]
     Dosage: UNK UKN, UNK
  9. CALCIUM [Concomitant]
     Dosage: UNK
  10. VEST [Concomitant]
     Dosage: UNK UKN, UNK

REACTIONS (7)
  - Cystic fibrosis [Unknown]
  - Condition aggravated [Not Recovered/Not Resolved]
  - Staphylococcal infection [Recovered/Resolved]
  - Vital capacity decreased [Recovered/Resolved]
  - Productive cough [Recovered/Resolved]
  - Dyspnoea [Recovered/Resolved]
  - Rales [Recovered/Resolved]
